FAERS Safety Report 6668921-7 (Version None)
Quarter: 2010Q2

REPORT INFORMATION
  Report Type: 
  Country: None (occurrence: None)
  Receive Date: 20100406
  Receipt Date: 20100329
  Transmission Date: 20101027
  Serious: Yes (Death, Other)
  Sender: FDA-Public Use
  Company Number: US-ROCHE-694994

PATIENT
  Sex: Male

DRUGS (1)
  1. BONIVA [Suspect]
     Route: 065

REACTIONS (2)
  - DEATH [None]
  - INTERSTITIAL LUNG DISEASE [None]
